FAERS Safety Report 4744622-7 (Version None)
Quarter: 2005Q3

REPORT INFORMATION
  Report Type: 
  Country: None (occurrence: None)
  Receive Date: 20050809
  Receipt Date: 20050622
  Transmission Date: 20060218
  Serious: Yes (Hospitalization)
  Sender: FDA-Public Use
  Company Number: 05R-163-0306110-00

PATIENT
  Sex: 0

DRUGS (1)
  1. SURVANTA [Suspect]

REACTIONS (1)
  - SEPSIS [None]
